FAERS Safety Report 14626270 (Version 2)
Quarter: 2020Q4

REPORT INFORMATION
  Report Type: Spontaneous
  Country: FR (occurrence: FR)
  Receive Date: 20180312
  Receipt Date: 20201127
  Transmission Date: 20210113
  Serious: Yes (Life-Threatening, Other)
  Sender: FDA-Public Use
  Company Number: FR-SA-2018SA065602

PATIENT

DRUGS (10)
  1. CRESTOR [Concomitant]
     Active Substance: ROSUVASTATIN CALCIUM
  2. FLUINDIONE [Suspect]
     Active Substance: FLUINDIONE
     Indication: THROMBOSIS
     Dosage: 10 MG, QD
     Route: 048
     Dates: end: 20180212
  3. BISOCE [Concomitant]
     Active Substance: BISOPROLOL
  4. ZYMAD [Concomitant]
     Active Substance: CHOLECALCIFEROL
  5. KARDEGIC [Suspect]
     Active Substance: ASPIRIN DL-LYSINE
     Indication: ACUTE CORONARY SYNDROME
     Dosage: 75 MG,QD
     Route: 065
  6. LOVENOX [Suspect]
     Active Substance: ENOXAPARIN SODIUM
     Indication: THROMBOSIS
     Dosage: 16000 IU,QD
     Route: 058
     Dates: start: 20180212
  7. FUROSEMIDE. [Concomitant]
     Active Substance: FUROSEMIDE
  8. LEVOTHYROX [Concomitant]
     Active Substance: LEVOTHYROXINE
     Dosage: UNK UG
  9. CALCIDOSE [CALCIUM CARBONATE] [Concomitant]
     Active Substance: CALCIUM CARBONATE
  10. HYDROCORTISONE. [Concomitant]
     Active Substance: HYDROCORTISONE

REACTIONS (4)
  - Anaemia [Recovered/Resolved]
  - Abdominal wall haematoma [Recovered/Resolved]
  - Acute kidney injury [Recovered/Resolved]
  - Shock haemorrhagic [Recovered/Resolved]

NARRATIVE: CASE EVENT DATE: 20180213
